FAERS Safety Report 6092911-9 (Version None)
Quarter: 2009Q1

REPORT INFORMATION
  Report Type: 
  Country: None (occurrence: None)
  Receive Date: 20090225
  Receipt Date: 20090217
  Transmission Date: 20090719
  Serious: Yes (Hospitalization)
  Sender: FDA-Public Use
  Company Number: JP-ALLERGAN-0901080US

PATIENT
  Sex: Female

DRUGS (6)
  1. ALESION TABLET [Suspect]
     Indication: HERPES ZOSTER
     Dosage: 20 MG, QD
     Route: 048
     Dates: end: 20081211
  2. MUCOSTA [Suspect]
     Indication: PROPHYLAXIS AGAINST GASTROINTESTINAL ULCER
     Route: 048
  3. TOFRANIL [Concomitant]
     Indication: HERPES ZOSTER
     Route: 048
  4. CYANOCOBALAMIN [Concomitant]
     Indication: HERPES ZOSTER
     Route: 048
  5. LOXONIN [Concomitant]
     Indication: HERPES ZOSTER
     Route: 048
  6. BLOPRESS [Concomitant]
     Indication: HYPERTENSION
     Route: 048

REACTIONS (1)
  - HEPATITIS [None]
